FAERS Safety Report 13618160 (Version 1)
Quarter: 2017Q2

REPORT INFORMATION
  Report Type: Spontaneous
  Country: US (occurrence: US)
  Receive Date: 20170606
  Receipt Date: 20170606
  Transmission Date: 20170830
  Serious: Yes (Hospitalization, Other)
  Sender: FDA-Public Use
  Company Number: US-TEVA-775268USA

PATIENT
  Age: 44 Year
  Sex: Male

DRUGS (12)
  1. LAMOTRIGINE. [Concomitant]
     Active Substance: LAMOTRIGINE
     Dosage: 100 MILLIGRAM DAILY;
     Dates: start: 20160403
  2. LYRICA [Suspect]
     Active Substance: PREGABALIN
     Dosage: 600 MILLIGRAM DAILY;
     Route: 065
     Dates: start: 20150403
  3. TOPIRAMATE. [Concomitant]
     Active Substance: TOPIRAMATE
     Indication: HEADACHE
     Dates: start: 20160403
  4. FUROSEMIDE. [Concomitant]
     Active Substance: FUROSEMIDE
     Indication: SWELLING
     Dosage: 60 MILLIGRAM DAILY;
     Dates: start: 20000104
  5. FUROSEMIDE. [Concomitant]
     Active Substance: FUROSEMIDE
     Indication: FLUID RETENTION
  6. POTASSIUM CHLORIDE. [Suspect]
     Active Substance: POTASSIUM CHLORIDE
     Indication: BLOOD POTASSIUM DECREASED
     Dosage: 10 MILLIEQUIVALENTS DAILY;
     Route: 065
     Dates: start: 20000104
  7. POTASSIUM CHLORIDE. [Suspect]
     Active Substance: POTASSIUM CHLORIDE
     Indication: MUSCLE SPASMS
  8. SIMVASTATIN. [Concomitant]
     Active Substance: SIMVASTATIN
     Indication: BLOOD CHOLESTEROL INCREASED
     Dosage: 40 MILLIGRAM DAILY;
     Dates: start: 20160402
  9. ATENOLOL. [Concomitant]
     Active Substance: ATENOLOL
     Indication: HYPERTENSION
     Dosage: 50 MILLIGRAM DAILY;
  10. LISINOPRIL. [Suspect]
     Active Substance: LISINOPRIL
     Route: 065
  11. OMEPRAZOLE. [Suspect]
     Active Substance: OMEPRAZOLE
     Dosage: 40 MILLIGRAM DAILY;
     Route: 065
     Dates: start: 20000104
  12. AMLODIPINE BESYLATE. [Concomitant]
     Active Substance: AMLODIPINE BESYLATE
     Indication: HYPERTENSION
     Dates: start: 20020403

REACTIONS (6)
  - Hernia [Recovered/Resolved]
  - Hypoaesthesia [Not Recovered/Not Resolved]
  - Type 2 diabetes mellitus [Recovered/Resolved]
  - Gastrooesophageal reflux disease [Recovered/Resolved]
  - Throat tightness [Recovered/Resolved]
  - Erectile dysfunction [Unknown]

NARRATIVE: CASE EVENT DATE: 201501
